FAERS Safety Report 9016388 (Version 1)
Quarter: 2013Q1

REPORT INFORMATION
  Report Type: Spontaneous
  Country: US (occurrence: US)
  Receive Date: 20130116
  Receipt Date: 20130116
  Transmission Date: 20140127
  Serious: Yes (Hospitalization)
  Sender: FDA-Public Use
  Company Number: US-009507513-1201USA04241

PATIENT
  Age: 2 Year
  Sex: Male
  Weight: 12.25 kg

DRUGS (2)
  1. SINGULAIR [Suspect]
     Indication: ASTHMA
     Dosage: 4 MG, QD
     Route: 048
     Dates: start: 20090201, end: 20100422
  2. SINGULAIR [Suspect]
     Indication: HYPERSENSITIVITY

REACTIONS (4)
  - Breath holding [Unknown]
  - Crying [Unknown]
  - Seizure anoxic [Unknown]
  - Convulsion [Unknown]
